FAERS Safety Report 11267615 (Version 1)
Quarter: 2015Q3

REPORT INFORMATION
  Report Type: Spontaneous
  Country: US (occurrence: US)
  Receive Date: 20150713
  Receipt Date: 20150713
  Transmission Date: 20151125
  Serious: Yes (Other)
  Sender: FDA-Public Use
  Company Number: US-GLAXOSMITHKLINE-US2015GSK099447

PATIENT
  Sex: Male

DRUGS (2)
  1. LAMOTRIGINE DISPERSIBLE TABLET [Suspect]
     Active Substance: LAMOTRIGINE
     Indication: SEIZURE
     Dosage: 150 MG, UNK
     Dates: start: 20150629
  2. LAMICTAL XR [Suspect]
     Active Substance: LAMOTRIGINE
     Indication: SEIZURE
     Dosage: 150 MG, UNK
     Dates: start: 20141101

REACTIONS (2)
  - Seizure [Unknown]
  - Intentional product use issue [Unknown]
